FAERS Safety Report 9599349 (Version 1)
Quarter: 2013Q4

REPORT INFORMATION
  Report Type: Spontaneous
  Country: US (occurrence: US)
  Receive Date: 20131004
  Receipt Date: 20131004
  Transmission Date: 20140711
  Serious: No
  Sender: FDA-Public Use
  Company Number: US-AMGEN-USASP2013029180

PATIENT
  Age: 61 Year
  Sex: Female
  Weight: 104.31 kg

DRUGS (12)
  1. ENBREL [Suspect]
     Indication: PRODUCT USED FOR UNKNOWN INDICATION
     Dosage: 50 MG, QWK
     Route: 058
     Dates: start: 2005, end: 20130421
  2. JANUVIA [Concomitant]
     Dosage: 25 MG, UNK
  3. ARAVA [Concomitant]
     Dosage: 20 MG, UNK
  4. METHOTREXATE [Concomitant]
     Dosage: 2.5 MG, UNK
  5. FOLIC ACID [Concomitant]
     Dosage: UNK
  6. THYROID [Concomitant]
     Dosage: 30 MG, UNK
  7. METFORMIN ER [Concomitant]
     Dosage: 500 MG, UNK
  8. DEXILANT [Concomitant]
     Dosage: 60 MG, UNK
  9. CRESTOR [Concomitant]
     Dosage: 20 MG, UNK
  10. EFFEXOR [Concomitant]
     Dosage: 75 MG, UNK
  11. VITAMIN D                          /00107901/ [Concomitant]
     Dosage: 50000 UNIT, UNK
  12. LISINOPRIL [Concomitant]
     Dosage: 30 MG, UNK

REACTIONS (1)
  - Therapeutic response decreased [Unknown]
